FAERS Safety Report 13247853 (Version 1)
Quarter: 2017Q1

REPORT INFORMATION
  Report Type: Spontaneous
  Country: US (occurrence: US)
  Receive Date: 20170217
  Receipt Date: 20170217
  Transmission Date: 20170428
  Serious: Yes (Other)
  Sender: FDA-Public Use
  Company Number: US-SUNOVION-2017SUN000682

PATIENT

DRUGS (1)
  1. LATUDA [Suspect]
     Active Substance: LURASIDONE HYDROCHLORIDE
     Dosage: UNKNOWN
     Route: 048

REACTIONS (12)
  - Pain [Unknown]
  - Suicidal ideation [Unknown]
  - Muscle spasms [Unknown]
  - Feeling abnormal [Unknown]
  - Abdominal pain upper [Unknown]
  - Lethargy [Unknown]
  - Fatigue [Unknown]
  - Malaise [Unknown]
  - Crying [Unknown]
  - Tremor [Unknown]
  - Frustration tolerance decreased [Unknown]
  - Dizziness [Unknown]
